FAERS Safety Report 9690010 (Version 1)
Quarter: 2013Q4

REPORT INFORMATION
  Report Type: Other
  Country: GB (occurrence: GB)
  Receive Date: 20131115
  Receipt Date: 20131115
  Transmission Date: 20140711
  Serious: Yes (Death)
  Sender: FDA-Public Use
  Company Number: GB-GLENMARK GENERICS INC.-2013GMK007465

PATIENT
  Age: 33 Year
  Sex: Male

DRUGS (2)
  1. GABAPENTIN [Suspect]
     Indication: NEURALGIA
     Dosage: UNK
     Dates: start: 2009
  2. DIHYDROCODEINE [Suspect]
     Indication: NEURALGIA
     Dosage: UNK
     Dates: start: 2009

REACTIONS (1)
  - Completed suicide [Fatal]
